FAERS Safety Report 4826913-4 (Version None)
Quarter: 2005Q4

REPORT INFORMATION
  Report Type: 
  Country: None (occurrence: None)
  Receive Date: 20051014
  Receipt Date: 20050721
  Transmission Date: 20060501
  Serious: No
  Sender: FDA-Public Use
  Company Number: 2005SP001996

PATIENT
  Age: 54 Year
  Sex: Female
  Weight: 77.5651 kg

DRUGS (6)
  1. LUNESTA [Suspect]
     Indication: INSOMNIA
     Dosage: 1.5 MG;HS;ORAL, 3 MG;HS;ORAL
     Route: 048
     Dates: start: 20050719, end: 20050719
  2. LUNESTA [Suspect]
     Indication: INSOMNIA
     Dosage: 1.5 MG;HS;ORAL, 3 MG;HS;ORAL
     Route: 048
     Dates: start: 20050720, end: 20050720
  3. ACTIVELLA [Concomitant]
  4. AMBIEN [Concomitant]
  5. HORMONE REPLACEMENT THERAPY [Concomitant]
  6. . [Concomitant]

REACTIONS (1)
  - DYSGEUSIA [None]
